FAERS Safety Report 5132069-3 (Version None)
Quarter: 2006Q4

REPORT INFORMATION
  Report Type: 
  Country: None (occurrence: None)
  Receive Date: 20061017
  Receipt Date: 20061004
  Transmission Date: 20070319
  Serious: Yes (Life-Threatening, Hospitalization, Disabling, Other)
  Sender: FDA-Public Use
  Company Number: 2006SP000031

PATIENT
  Age: 61 Year
  Sex: Female
  Weight: 117.028 kg

DRUGS (5)
  1. PEG-INTRON [Suspect]
     Indication: HEPATITIS C
     Dosage: 150 MCG; QW; SC
     Route: 058
     Dates: start: 20060206, end: 20060504
  2. RIBAVIRIN [Suspect]
     Indication: HEPATITIS C
     Dosage: 1000 MG; QD; PO
     Route: 048
     Dates: start: 20060206, end: 20060504
  3. LISINOPRIL [Concomitant]
  4. MAXZIDE [Concomitant]
  5. COZAAR [Concomitant]

REACTIONS (6)
  - ANAEMIA [None]
  - ATRIAL FIBRILLATION [None]
  - AUTOIMMUNE HEPATITIS [None]
  - BLOOD THYROID STIMULATING HORMONE DECREASED [None]
  - HYPERTHYROIDISM [None]
  - HYPOKALAEMIA [None]
